FAERS Safety Report 6061805-7 (Version None)
Quarter: 2009Q1

REPORT INFORMATION
  Report Type: 
  Country: None (occurrence: None)
  Receive Date: 20090202
  Receipt Date: 20090120
  Transmission Date: 20090719
  Serious: Yes (Other)
  Sender: FDA-Public Use
  Company Number: US-ELI_LILLY_AND_COMPANY-US200711001354

PATIENT
  Sex: Female
  Weight: 89.796 kg

DRUGS (19)
  1. BYETTA [Suspect]
     Dosage: 5 UG, 2/D
     Route: 058
     Dates: start: 20061025
  2. BYETTA [Suspect]
     Dosage: 10 UG, 2/D
     Route: 058
     Dates: start: 20061122, end: 20071029
  3. SYNTHROID [Concomitant]
     Indication: HYPOTHYROIDISM
     Dosage: 50 UG, DAILY (1/D)
     Route: 048
     Dates: end: 20071029
  4. SYNTHROID [Concomitant]
     Dosage: 125 UG, OTHER
     Route: 048
  5. MAGNESIUM SULFATE [Concomitant]
     Dosage: 200 MG, DAILY (1/D)
     Route: 048
  6. FISH OIL [Concomitant]
     Dosage: UNK, UNKNOWN
  7. MULTI-VITAMINS [Concomitant]
     Dosage: UNK, DAILY (1/D)
     Route: 048
  8. CLARITIN [Concomitant]
     Dosage: 10 MG, DAILY (1/D)
     Route: 048
  9. ADVAIR DISKUS 100/50 [Concomitant]
     Dosage: UNK, 2/D
     Route: 055
  10. METFORMIN [Concomitant]
     Indication: DIABETES MELLITUS
     Dosage: 850 MG, 3/D
     Route: 048
     Dates: start: 20061025
  11. ACTOS [Concomitant]
     Indication: DIABETES MELLITUS
     Dosage: 15 MG, 3/D
     Route: 048
  12. ASPIRIN [Concomitant]
     Dosage: 81 MG, DAILY (1/D)
     Route: 048
  13. CALCIUM W/VITAMIN D NOS [Concomitant]
     Dosage: 1200 MG, DAILY (1/D)
     Route: 048
  14. AMITRIPTYLINE HCL [Concomitant]
     Dosage: UNK, EACH EVENING
     Route: 048
     Dates: start: 20060102, end: 20070119
  15. ACCUPRIL [Concomitant]
     Dosage: 10 MG, DAILY (1/D)
     Route: 048
     Dates: start: 20070119, end: 20071029
  16. GLUCOPHAGE [Concomitant]
     Dosage: 1000 MG, 2/D
     Route: 048
     Dates: start: 20051109
  17. LIPITOR [Concomitant]
     Dosage: 10 MG, DAILY (1/D)
     Route: 048
     Dates: start: 20050718
  18. OMNICEF [Concomitant]
     Dosage: 600 MG, DAILY (1/D)
     Route: 048
     Dates: start: 20060318, end: 20070119
  19. INFLUENZA VACCINE [Concomitant]
     Dates: start: 20061025, end: 20061025

REACTIONS (2)
  - BLOOD GLUCOSE INCREASED [None]
  - LYMPHOMA [None]
